FAERS Safety Report 25531572 (Version 1)
Quarter: 2025Q3

REPORT INFORMATION
  Report Type: Report from Study
  Country: EU (occurrence: EU)
  Receive Date: 20250709
  Receipt Date: 20250709
  Transmission Date: 20251020
  Serious: Yes (Death, Hospitalization, Other)
  Sender: ABBVIE
  Company Number: EU-ABBVIE-6358881

PATIENT
  Age: 76 Year
  Sex: Female
  Weight: 45 kg

DRUGS (2)
  1. FOSCARBIDOPA\FOSLEVODOPA [Suspect]
     Active Substance: FOSCARBIDOPA\FOSLEVODOPA
     Indication: Parkinson^s disease
     Route: 058
     Dates: start: 20250303
  2. MORPHINE [Suspect]
     Active Substance: MORPHINE
     Indication: Abdominal pain
     Route: 065
     Dates: start: 20250701

REACTIONS (6)
  - Small intestinal perforation [Fatal]
  - General physical health deterioration [Unknown]
  - Abdominal pain [Unknown]
  - Hypotension [Unknown]
  - Depressed level of consciousness [Unknown]
  - Intestinal ischaemia [Fatal]

NARRATIVE: CASE EVENT DATE: 20250101
